FAERS Safety Report 5230499-2 (Version None)
Quarter: 2007Q1

REPORT INFORMATION
  Report Type: 
  Country: None (occurrence: None)
  Receive Date: 20070206
  Receipt Date: 20070125
  Transmission Date: 20070707
  Serious: Yes (Hospitalization)
  Sender: FDA-Public Use
  Company Number: ZA-BRISTOL-MYERS SQUIBB COMPANY-13524095

PATIENT
  Age: 80 Year
  Sex: Male
  Weight: 85 kg

DRUGS (19)
  1. IRBESARTAN [Suspect]
     Indication: HYPERTENSION
     Dates: start: 20031201
  2. BLINDED: PLACEBO [Suspect]
     Indication: HYPERTENSION
     Dates: start: 20031201
  3. WARFARIN SODIUM [Suspect]
     Indication: PROPHYLAXIS
     Dates: start: 20031201
  4. ASPIRIN [Suspect]
  5. DIGOXIN [Concomitant]
  6. DOBUTREX [Concomitant]
  7. DIURETIC [Concomitant]
  8. BETA BLOCKER [Concomitant]
  9. NEXIUM [Concomitant]
  10. PERINDOPRIL ERBUMINE [Concomitant]
  11. LANOXIN [Concomitant]
  12. UNAT [Concomitant]
  13. CARLOC [Concomitant]
  14. LASIX [Concomitant]
  15. VOLUVEN [Concomitant]
  16. DOBUTREX [Concomitant]
  17. SOLU-CORTEF [Concomitant]
  18. MEROPENEM [Concomitant]
  19. TEICOPLANIN [Concomitant]

REACTIONS (4)
  - ARTERIOVENOUS FISTULA OPERATION [None]
  - INGUINAL HERNIA REPAIR [None]
  - RENAL FAILURE [None]
  - SEPSIS [None]
